FAERS Safety Report 22151595 (Version 2)
Quarter: 2023Q4

REPORT INFORMATION
  Report Type: Spontaneous
  Country: CN (occurrence: CN)
  Receive Date: 20230329
  Receipt Date: 20231006
  Transmission Date: 20240110
  Serious: Yes (Life-Threatening)
  Sender: FDA-Public Use
  Company Number: CN-BAYER-2023A041403

PATIENT
  Sex: Male

DRUGS (1)
  1. ULTRAVIST [Suspect]
     Active Substance: IOPROMIDE
     Dosage: 80 ML, ONCE(WITH 0.9%NORMAL SALINE 40ML, AT SPPED OF 3.5ML/S)
     Route: 042
     Dates: start: 20230323, end: 20230323

REACTIONS (6)
  - Contrast media allergy [Recovering/Resolving]
  - Hot flush [Recovering/Resolving]
  - Sensation of foreign body [Recovering/Resolving]
  - Blood pressure immeasurable [Recovering/Resolving]
  - Seizure [Recovering/Resolving]
  - Depressed level of consciousness [Recovering/Resolving]

NARRATIVE: CASE EVENT DATE: 20230323
